FAERS Safety Report 7819808-5 (Version None)
Quarter: 2011Q4

REPORT INFORMATION
  Report Type: 
  Country: None (occurrence: None)
  Receive Date: 20111018
  Receipt Date: 20110222
  Transmission Date: 20120403
  Serious: No
  Sender: FDA-Public Use
  Company Number: US-ASTRAZENECA-2011SE10190

PATIENT
  Age: 63 Year
  Sex: Female

DRUGS (2)
  1. CAFFEINE CITRATE [Concomitant]
  2. SYMBICORT [Suspect]
     Route: 055

REACTIONS (2)
  - HEART RATE IRREGULAR [None]
  - FEELING JITTERY [None]
